FAERS Safety Report 7645079-9 (Version None)
Quarter: 2011Q3

REPORT INFORMATION
  Report Type: 
  Country: None (occurrence: None)
  Receive Date: 20110729
  Receipt Date: 20110722
  Transmission Date: 20111222
  Serious: Yes (Hospitalization, Other)
  Sender: FDA-Public Use
  Company Number: PHEH2010US03480

PATIENT
  Sex: Female

DRUGS (11)
  1. RIFAMPICIN [Concomitant]
  2. BUSPAR [Concomitant]
  3. LOTENSIN [Concomitant]
  4. ZELNORM [Suspect]
     Indication: IRRITABLE BOWEL SYNDROME
  5. VISTARIL [Concomitant]
  6. FLEXERIL [Concomitant]
  7. LEVAQUIN [Concomitant]
  8. ZELNORM [Suspect]
     Indication: ABDOMINAL DISCOMFORT
     Dosage: 6 MG, BID
  9. RESTORIL [Concomitant]
  10. INH [Concomitant]
  11. PROZAC [Concomitant]

REACTIONS (26)
  - PNEUMOTHORAX [None]
  - ORTHOPNOEA [None]
  - OSTEOARTHRITIS [None]
  - PLEURAL EFFUSION [None]
  - PNEUMONIA [None]
  - GASTRIC ULCER [None]
  - CONSTIPATION [None]
  - LUNG NEOPLASM [None]
  - ATELECTASIS [None]
  - CARDIOMEGALY [None]
  - INJURY [None]
  - CHEST PAIN [None]
  - HYPERTENSION [None]
  - BACK PAIN [None]
  - ABDOMINAL PAIN [None]
  - CHOLELITHIASIS [None]
  - INSOMNIA [None]
  - AORTIC VALVE INCOMPETENCE [None]
  - PULMONARY VALVE INCOMPETENCE [None]
  - MITRAL VALVE INCOMPETENCE [None]
  - TRICUSPID VALVE INCOMPETENCE [None]
  - DEPRESSION [None]
  - COLITIS [None]
  - PULMONARY ARTERIAL HYPERTENSION [None]
  - TUBERCULOSIS [None]
  - PLEURAL FIBROSIS [None]
